FAERS Safety Report 14740508 (Version 2)
Quarter: 2018Q2

REPORT INFORMATION
  Report Type: Report from Study
  Country: CA (occurrence: CA)
  Receive Date: 20180410
  Receipt Date: 20180411
  Transmission Date: 20180711
  Serious: No
  Sender: FDA-Public Use
  Company Number: CA-ROCHE-2093315

PATIENT
  Age: 38 Year
  Sex: Female

DRUGS (4)
  1. DIPHENHYDRAMINE. [Concomitant]
     Active Substance: DIPHENHYDRAMINE
     Indication: PREMEDICATION
     Dosage: 50 MG PO/IV 30-60 MIN PRIOR TO EACH INFUSION
     Route: 065
     Dates: start: 20180315, end: 20180315
  2. ACETAMINOPHEN. [Concomitant]
     Active Substance: ACETAMINOPHEN
     Indication: PREMEDICATION
     Dosage: 1000 MG PO 30-60 MIN PRIOR TO EACH INFUSION
     Route: 048
     Dates: start: 20180315, end: 20180315
  3. OCREVUS [Suspect]
     Active Substance: OCRELIZUMAB
     Indication: RELAPSING-REMITTING MULTIPLE SCLEROSIS
     Dosage: 300 MG/10 ML VIALS?300 MG IV DAY 0 AND DAY 14, 600 MG IV EVERY 6 MONTHS
     Route: 042
     Dates: start: 20180315
  4. METHYLPREDNISOLONE. [Concomitant]
     Active Substance: METHYLPREDNISOLONE
     Indication: PREMEDICATION
     Dosage: 100 MG IV 30 MIN PRIOR TO EACH INFUSION
     Route: 042
     Dates: start: 20180315, end: 20180315

REACTIONS (9)
  - Balance disorder [Recovered/Resolved]
  - Cough [Recovered/Resolved]
  - Sinus disorder [Recovered/Resolved]
  - Nasal congestion [Recovered/Resolved]
  - Visual impairment [Recovered/Resolved]
  - Infusion related reaction [Recovered/Resolved]
  - Pyrexia [Recovered/Resolved]
  - Ill-defined disorder [Recovered/Resolved]
  - Nasopharyngitis [Recovering/Resolving]

NARRATIVE: CASE EVENT DATE: 20180315
